FAERS Safety Report 6270956-3 (Version None)
Quarter: 2009Q3

REPORT INFORMATION
  Report Type: 
  Country: None (occurrence: None)
  Receive Date: 20090716
  Receipt Date: 20090707
  Transmission Date: 20100115
  Serious: Yes (Other)
  Sender: FDA-Public Use
  Company Number: US-ELI_LILLY_AND_COMPANY-US200907001428

PATIENT
  Sex: Male

DRUGS (1)
  1. CIALIS [Suspect]
     Dosage: 10 MG, UNK
     Route: 065

REACTIONS (6)
  - CONTUSION [None]
  - ERECTION INCREASED [None]
  - INTENTIONAL DRUG MISUSE [None]
  - PENILE SWELLING [None]
  - PENIS DISORDER [None]
  - TENDERNESS [None]
